FAERS Safety Report 15810732 (Version 1)
Quarter: 2019Q1

REPORT INFORMATION
  Report Type: Spontaneous
  Country: US (occurrence: US)
  Receive Date: 20190111
  Receipt Date: 20190111
  Transmission Date: 20190417
  Serious: No
  Sender: FDA-Public Use
  Company Number: US-TEVA-2019-US-997137

PATIENT
  Sex: Female

DRUGS (1)
  1. BISOPROLOL [Suspect]
     Active Substance: BISOPROLOL
     Indication: ATRIAL FIBRILLATION
     Route: 065

REACTIONS (5)
  - Feeling abnormal [Unknown]
  - Hyperhidrosis [Unknown]
  - Depression [Unknown]
  - Fatigue [Unknown]
  - Heart rate irregular [Unknown]
